FAERS Safety Report 24465846 (Version 1)
Quarter: 2024Q4

REPORT INFORMATION
  Report Type: Report from Study
  Country: US (occurrence: US)
  Receive Date: 20241018
  Receipt Date: 20241018
  Transmission Date: 20250115
  Serious: No
  Sender: ROCHE
  Company Number: US-ROCHE-3523730

PATIENT
  Age: 58 Year
  Sex: Female
  Weight: 84.37 kg

DRUGS (15)
  1. XOLAIR [Suspect]
     Active Substance: OMALIZUMAB
     Indication: Asthma
     Route: 058
  2. XOLAIR [Suspect]
     Active Substance: OMALIZUMAB
  3. ALBUTEROL [Concomitant]
     Active Substance: ALBUTEROL
  4. ASPIRIN [Concomitant]
     Active Substance: ASPIRIN
     Route: 048
  5. ATORVASTATIN [Concomitant]
     Active Substance: ATORVASTATIN
     Route: 048
  6. CARVEDILOL [Concomitant]
     Active Substance: CARVEDILOL
  7. DITROPAN [Concomitant]
     Active Substance: OXYBUTYNIN CHLORIDE
  8. EPINEPHRINE [Concomitant]
     Active Substance: EPINEPHRINE
  9. FLUTICASONE [Concomitant]
     Active Substance: FLUTICASONE
  10. GABAPENTIN [Concomitant]
     Active Substance: GABAPENTIN
     Route: 048
  11. OMEPRAZOLE [Concomitant]
     Active Substance: OMEPRAZOLE
     Route: 048
  12. PREDNISONE [Concomitant]
     Active Substance: PREDNISONE
     Route: 048
  13. SPIRIVA [Concomitant]
     Active Substance: TIOTROPIUM BROMIDE MONOHYDRATE
  14. SYMBICORT [Concomitant]
     Active Substance: BUDESONIDE\FORMOTEROL FUMARATE DIHYDRATE
  15. TRIAMTERENE [Concomitant]
     Active Substance: TRIAMTERENE
     Route: 048

REACTIONS (7)
  - Blood pressure abnormal [Unknown]
  - Paranasal sinus discomfort [Unknown]
  - Sinus congestion [Unknown]
  - Ear pain [Unknown]
  - Lacrimation increased [Unknown]
  - Headache [Unknown]
  - Paranasal sinus hypersecretion [Unknown]
